FAERS Safety Report 6094931-7 (Version None)
Quarter: 2009Q1

REPORT INFORMATION
  Report Type: 
  Country: None (occurrence: None)
  Receive Date: 20090227
  Receipt Date: 20090224
  Transmission Date: 20090719
  Serious: Yes (Hospitalization)
  Sender: FDA-Public Use
  Company Number: DE-BRISTOL-MYERS SQUIBB COMPANY-14496608

PATIENT
  Age: 69 Year
  Sex: Male
  Weight: 98 kg

DRUGS (12)
  1. CETUXIMAB [Suspect]
     Indication: COLORECTAL CANCER
     Dosage: 1ST INFUSION: 30JAN09
     Route: 042
     Dates: start: 20081112
  2. IRINOTECAN HCL [Suspect]
     Indication: COLORECTAL CANCER
     Dosage: 1ST INFUSION: 21JAN09
     Route: 042
     Dates: start: 20081112
  3. FLUOROURACIL [Suspect]
     Indication: COLORECTAL CANCER
     Dosage: 1ST INFUSION: 21JAN09
     Route: 042
     Dates: start: 20081112
  4. FOLINIC ACID [Suspect]
     Indication: COLORECTAL CANCER
     Dosage: 1ST INFUSION: 21JAN09
     Route: 042
     Dates: start: 20081112
  5. DELIX PLUS [Concomitant]
     Route: 048
  6. ASPIRIN [Concomitant]
     Route: 048
  7. PANTOZOL [Concomitant]
     Route: 048
  8. CORANGIN [Concomitant]
     Route: 048
  9. BELOC-ZOK [Concomitant]
     Route: 048
  10. METRONIDAZOLE HCL [Concomitant]
  11. ZOFRAN [Concomitant]
     Route: 048
  12. UREA [Concomitant]
     Dosage: FORMULATION: CREAM

REACTIONS (2)
  - CATHETER RELATED INFECTION [None]
  - THROMBOSIS [None]
